FAERS Safety Report 5970938-2 (Version None)
Quarter: 2008Q4

REPORT INFORMATION
  Report Type: 
  Country: None (occurrence: None)
  Receive Date: 20081128
  Receipt Date: 20081118
  Transmission Date: 20090506
  Serious: Yes (Other)
  Sender: FDA-Public Use
  Company Number: PHHY2008CA27995

PATIENT
  Sex: Female

DRUGS (8)
  1. DIOVAN [Suspect]
     Indication: HYPERTENSION
     Dosage: 80 MG, QD
     Route: 048
     Dates: start: 20071012
  2. BETA BLOCKING AGENTS [Concomitant]
     Dosage: UNK
  3. METOPROLOL TARTRATE [Concomitant]
     Dosage: 50 MG, BID
  4. ASAPHEN [Concomitant]
     Dosage: 80 MG DAILY
     Route: 048
     Dates: start: 20060801
  5. CRESTOR [Concomitant]
     Dosage: 40 MG DAILY
     Route: 048
     Dates: start: 20060801
  6. PREVACID [Concomitant]
     Dosage: 30 MG DAILY
     Route: 048
     Dates: start: 20060901
  7. METFORMIN HCL [Concomitant]
     Dosage: 500 MG, BID
     Route: 048
     Dates: start: 20061101
  8. NORVASC [Concomitant]
     Dosage: 5 MG DAILY
     Route: 048
     Dates: start: 20030701

REACTIONS (3)
  - ANGIOPLASTY [None]
  - AORTIC VALVE REPLACEMENT [None]
  - CORONARY ARTERY BYPASS [None]
